FAERS Safety Report 8603313-2 (Version None)
Quarter: 2012Q3

REPORT INFORMATION
  Report Type: 
  Country: None (occurrence: None)
  Receive Date: 20120817
  Receipt Date: 20120814
  Transmission Date: 20120928
  Serious: Yes (Death, Hospitalization)
  Sender: FDA-Public Use
  Company Number: PHHY2012AU070415

PATIENT
  Sex: Male

DRUGS (2)
  1. GILENYA [Suspect]
     Dosage: UNK
     Dates: start: 20111201
  2. VITAMIN B12 FOR INJECTION [Concomitant]

REACTIONS (4)
  - LOBAR PNEUMONIA [None]
  - PYREXIA [None]
  - DEATH [None]
  - DYSPNOEA [None]
